FAERS Safety Report 18646698 (Version 1)
Quarter: 2020Q4

REPORT INFORMATION
  Report Type: Other
  Country: US (occurrence: US)
  Receive Date: 20201221
  Receipt Date: 20201221
  Transmission Date: 20210114
  Serious: No
  Sender: FDA-Public Use
  Company Number: US-ACORDA-ACO_167045_2020

PATIENT
  Sex: Male

DRUGS (3)
  1. INBRIJA [Suspect]
     Active Substance: LEVODOPA
     Indication: PARKINSON^S DISEASE
     Dosage: 84 MILLIGRAM, PRN, NOT TO EXCEED 5 DOSES A DAY
     Dates: start: 20201013
  2. ASTHMA INHALER [Concomitant]
     Active Substance: UNSPECIFIED INGREDIENT
  3. INBRIJA [Suspect]
     Active Substance: LEVODOPA
     Indication: ON AND OFF PHENOMENON

REACTIONS (6)
  - Incorrect dose administered by device [Unknown]
  - Somnolence [Unknown]
  - Hallucination [Unknown]
  - Dyskinesia [Unknown]
  - Dizziness [Unknown]
  - Product residue present [Unknown]
